FAERS Safety Report 25680454 (Version 1)
Quarter: 2025Q3

REPORT INFORMATION
  Report Type: Spontaneous
  Country: GB (occurrence: GB)
  Receive Date: 20250814
  Receipt Date: 20250814
  Transmission Date: 20251021
  Serious: Yes (Other)
  Sender: MYLAN
  Company Number: None

PATIENT
  Sex: Male

DRUGS (8)
  1. MIRTAZAPINE [Suspect]
     Active Substance: MIRTAZAPINE
     Indication: Product used for unknown indication
     Route: 065
  2. MIRTAZAPINE [Suspect]
     Active Substance: MIRTAZAPINE
  3. MIRTAZAPINE [Suspect]
     Active Substance: MIRTAZAPINE
  4. MIRTAZAPINE [Suspect]
     Active Substance: MIRTAZAPINE
     Route: 065
  5. MIRTAZAPINE [Suspect]
     Active Substance: MIRTAZAPINE
     Route: 065
  6. MIRTAZAPINE [Suspect]
     Active Substance: MIRTAZAPINE
  7. MIRTAZAPINE [Suspect]
     Active Substance: MIRTAZAPINE
  8. MIRTAZAPINE [Suspect]
     Active Substance: MIRTAZAPINE
     Route: 065

REACTIONS (3)
  - Medication error [Unknown]
  - Musculoskeletal stiffness [Not Recovered/Not Resolved]
  - Myalgia [Not Recovered/Not Resolved]

NARRATIVE: CASE EVENT DATE: 20250803
